FAERS Safety Report 9671448 (Version 2)
Quarter: 2013Q4

REPORT INFORMATION
  Report Type: Report from Study
  Country: PT (occurrence: PT)
  Receive Date: 20131106
  Receipt Date: 20131106
  Transmission Date: 20140711
  Serious: Yes (Other)
  Sender: FDA-Public Use
  Company Number: PHHY2013PT091807

PATIENT
  Age: 47 Year
  Sex: Male

DRUGS (5)
  1. GILENYA [Suspect]
     Indication: MULTIPLE SCLEROSIS
     Dosage: 0.5 MG, QD
     Route: 048
     Dates: start: 20120830, end: 20130828
  2. GILENYA [Suspect]
     Dosage: 0.5 MG, QD
     Route: 048
     Dates: start: 20131023
  3. LIORESAL [Concomitant]
     Dosage: 25 MG
  4. ELONTRIL [Concomitant]
     Dosage: 150 MG
     Dates: start: 201306, end: 20131014
  5. LYRICA [Concomitant]
     Dosage: 75 MG

REACTIONS (6)
  - Syncope [Recovered/Resolved]
  - Memory impairment [Not Recovered/Not Resolved]
  - Fatigue [Recovered/Resolved]
  - Dyspnoea [Recovered/Resolved]
  - Asthenia [Not Recovered/Not Resolved]
  - Lymphocyte count decreased [Unknown]
